FAERS Safety Report 7020327-7 (Version None)
Quarter: 2010Q3

REPORT INFORMATION
  Report Type: 
  Country: None (occurrence: None)
  Receive Date: 20100929
  Receipt Date: 20100325
  Transmission Date: 20110219
  Serious: No
  Sender: FDA-Public Use
  Company Number: US-BAYER-201020606BCC

PATIENT
  Age: 37 Year
  Sex: Male

DRUGS (1)
  1. ALEVE (CAPLET) [Suspect]
     Indication: TOOTHACHE
     Dosage: FOR THE PAST 2 YEAS HE HAD BEEN TAKEN 6 - 8 CAPLEST A DAY
     Route: 048
     Dates: start: 20080101

REACTIONS (1)
  - NO ADVERSE EVENT [None]
